FAERS Safety Report 7410268-5 (Version None)
Quarter: 2011Q2

REPORT INFORMATION
  Report Type: 
  Country: None (occurrence: None)
  Receive Date: 20110412
  Receipt Date: 20101018
  Transmission Date: 20111010
  Serious: Yes (Other)
  Sender: FDA-Public Use
  Company Number: US-BAYER-201038173NA

PATIENT
  Age: 45 Year
  Sex: Female
  Weight: 76.644 kg

DRUGS (10)
  1. YASMIN [Suspect]
     Indication: CONTRACEPTION
  2. YAZ [Interacting]
     Indication: PRODUCT USED FOR UNKNOWN INDICATION
     Dosage: UNK UNK, QD
     Route: 048
     Dates: start: 20060101, end: 20090701
  3. PONSTEL [Concomitant]
     Dosage: UNK
     Dates: start: 20090101
  4. ANTIBIOTICS [Interacting]
     Dosage: UNK
     Dates: start: 20080101, end: 20080101
  5. YAZ [Interacting]
     Indication: CONTRACEPTION
  6. OCELLA [Suspect]
     Indication: CONTRACEPTION
  7. OCELLA [Suspect]
     Indication: PRODUCT USED FOR UNKNOWN INDICATION
     Dosage: UNK UNK, QD
     Route: 048
     Dates: start: 20090101
  8. YASMIN [Suspect]
     Indication: PRODUCT USED FOR UNKNOWN INDICATION
     Route: 048
  9. IBUPROFEN [Concomitant]
  10. UNKNOWN [Interacting]
     Dosage: UNK
     Dates: start: 20090101

REACTIONS (15)
  - PELVIC PAIN [None]
  - INSOMNIA [None]
  - CHOLECYSTECTOMY [None]
  - HEPATIC NEOPLASM [None]
  - MUSCLE SPASMS [None]
  - MYOCARDIAL INFARCTION [None]
  - DIZZINESS [None]
  - ABDOMINAL PAIN [None]
  - CHOLELITHIASIS [None]
  - DYSPNOEA [None]
  - CHEST PAIN [None]
  - GALLBLADDER DISORDER [None]
  - VAGINAL HAEMORRHAGE [None]
  - HEPATIC ENZYME INCREASED [None]
  - PNEUMONIA [None]
